FAERS Safety Report 9236168 (Version 2)
Quarter: 2013Q2

REPORT INFORMATION
  Report Type: Spontaneous
  Country: JP (occurrence: JP)
  Receive Date: 20130417
  Receipt Date: 20130507
  Transmission Date: 20140414
  Serious: Yes (Other)
  Sender: FDA-Public Use
  Company Number: JP-ELI_LILLY_AND_COMPANY-JP201303009646

PATIENT
  Age: 33 Year
  Sex: Male

DRUGS (4)
  1. CYMBALTA [Suspect]
     Indication: DEPRESSION
     Dosage: 20 MG, QD
     Route: 048
     Dates: start: 20130201, end: 20130228
  2. CYMBALTA [Suspect]
     Dosage: 40 MG, QD
     Route: 048
     Dates: start: 20130301
  3. SILECE [Concomitant]
     Indication: INSOMNIA
     Dosage: 1 MG, QD
     Route: 048
     Dates: start: 20100213, end: 20130306
  4. HALCION [Concomitant]
     Indication: INSOMNIA
     Dosage: 0.25 MG, QD
     Route: 048
     Dates: start: 20100828, end: 20130306

REACTIONS (1)
  - Dissociative amnesia [Recovered/Resolved]
